FAERS Safety Report 4638599-2 (Version None)
Quarter: 2005Q1

REPORT INFORMATION
  Report Type: 
  Country: None (occurrence: None)
  Receive Date: 20050301
  Receipt Date: 20050301
  Transmission Date: 20050727
  Serious: No
  Sender: FDA-Public Use
  Company Number: None

PATIENT
  Age: 60 Year
  Sex: Male

DRUGS (2)
  1. LIPITOR [Suspect]
     Dosage: TAB
  2. ZESTRIL [Suspect]
     Dosage: TAB

REACTIONS (1)
  - MEDICATION ERROR [None]
